FAERS Safety Report 8672207 (Version 2)
Quarter: 2012Q4

REPORT INFORMATION
  Report Type: 
  Country: US (occurrence: US)
  Receive Date: 20120719
  Receipt Date: 20121009
  Transmission Date: 20130627
  Serious: Yes (Death)
  Sender: FDA-Public Use
  Company Number: US-SHIRE-ALL1-2012-03429

PATIENT

DRUGS (1)
  1. PENTASA [Suspect]
     Indication: CROHN^S DISEASE
     Dosage: 500 mg, 3x/day:tid
     Route: 048

REACTIONS (2)
  - Metastatic neoplasm [Fatal]
  - Off label use [Unknown]
